FAERS Safety Report 20833912 (Version 1)
Quarter: 2022Q2

REPORT INFORMATION
  Report Type: Spontaneous
  Country: US (occurrence: None)
  Receive Date: 20220513
  Receipt Date: 20220513
  Transmission Date: 20220721
  Serious: No
  Sender: FDA-Public Use
  Company Number: None

PATIENT
  Sex: Female

DRUGS (2)
  1. DEVICE [Suspect]
     Active Substance: DEVICE
     Indication: Hypogammaglobulinaemia
     Dosage: OTHER STRENGTH : 0.2GM/ML;?FREQUENCY : WEEKLY;?
     Route: 058
     Dates: start: 202203
  2. HIZENTRA [Suspect]
     Active Substance: HUMAN IMMUNOGLOBULIN G
     Route: 058
     Dates: start: 202203

REACTIONS (2)
  - Injection site swelling [None]
  - Injection site extravasation [None]
